FAERS Safety Report 15155977 (Version 1)
Quarter: 2018Q3

REPORT INFORMATION
  Report Type: Spontaneous
  Country: GB (occurrence: GB)
  Receive Date: 20180717
  Receipt Date: 20180717
  Transmission Date: 20181010
  Serious: Yes (Other)
  Sender: FDA-Public Use
  Company Number: PHHY2018GB043863

PATIENT
  Age: 49 Year
  Sex: Female
  Weight: 92 kg

DRUGS (6)
  1. ACICLOVIR [Concomitant]
     Active Substance: ACYCLOVIR
     Indication: PRODUCT USED FOR UNKNOWN INDICATION
     Dosage: 1 DF, 5 TIMES A DAY
     Route: 065
     Dates: start: 20180314, end: 20180321
  2. TRAMADOL. [Concomitant]
     Active Substance: TRAMADOL
     Indication: PAIN
     Dosage: 1?2 TO BE TAKEN FOUR TIMES DAILY
     Route: 065
     Dates: start: 20180226, end: 20180326
  3. LACTULOSE. [Concomitant]
     Active Substance: LACTULOSE
     Indication: CONSTIPATION
     Dosage: 30 ML, QD
     Route: 065
     Dates: start: 20180226, end: 20180326
  4. NITROFURANTOIN. [Concomitant]
     Active Substance: NITROFURANTOIN
     Indication: URINARY TRACT INFECTION
     Dosage: 2 DF, QD (FOR 7 DAYS)
     Route: 065
     Dates: start: 20180215, end: 20180322
  5. GLYCEROL [Concomitant]
     Active Substance: GLYCERIN
     Indication: PRODUCT USED FOR UNKNOWN INDICATION
     Dosage: 1 DF, UNK
     Route: 065
     Dates: start: 20180227, end: 20180326
  6. CIPROFLOXACIN. [Suspect]
     Active Substance: CIPROFLOXACIN
     Indication: PRODUCT USED FOR UNKNOWN INDICATION
     Dosage: UNK
     Route: 065

REACTIONS (3)
  - Neuropathy peripheral [Not Recovered/Not Resolved]
  - Pain [Unknown]
  - Hypoaesthesia [Unknown]

NARRATIVE: CASE EVENT DATE: 20180403
